FAERS Safety Report 6405890-9 (Version None)
Quarter: 2009Q4

REPORT INFORMATION
  Report Type: 
  Country: None (occurrence: None)
  Receive Date: 20091016
  Receipt Date: 20091016
  Transmission Date: 20100525
  Serious: Yes (Other)
  Sender: FDA-Public Use
  Company Number: None

PATIENT
  Age: 68 Year
  Sex: Female
  Weight: 56.246 kg

DRUGS (2)
  1. AMBIEN [Suspect]
     Indication: CIRCADIAN RHYTHM SLEEP DISORDER
     Dosage: 5MG. ONE EVERY FEW DAYS BUCCAL
     Route: 002
     Dates: start: 20090903, end: 20091001
  2. AMBIEN [Suspect]
     Indication: SLEEP DISORDER
     Dosage: 5MG. ONE EVERY FEW DAYS BUCCAL
     Route: 002
     Dates: start: 20090903, end: 20091001

REACTIONS (2)
  - APHTHOUS STOMATITIS [None]
  - SWOLLEN TONGUE [None]
